FAERS Safety Report 6170283-9 (Version None)
Quarter: 2009Q2

REPORT INFORMATION
  Report Type: 
  Country: None (occurrence: None)
  Receive Date: 20090428
  Receipt Date: 20090416
  Transmission Date: 20091009
  Serious: Yes (Other)
  Sender: FDA-Public Use
  Company Number: GB-PFIZER INC-2009199035

PATIENT

DRUGS (9)
  1. PREGABALIN [Suspect]
     Indication: MYOFASCIAL PAIN SYNDROME
     Dosage: 150 MG, 3X/DAY
     Route: 048
     Dates: start: 20050720, end: 20090320
  2. AMITRIPTYLINE HYDROCHLORIDE [Concomitant]
     Dosage: 25 MG, 2X/DAY
     Dates: start: 20010101
  3. DICLOFENAC SODIUM [Concomitant]
     Dosage: 50 MG, AS NEEDED
     Dates: start: 20040101
  4. DIPROBASE CREAM [Concomitant]
     Dosage: UNK
  5. OMEPRAZOLE [Concomitant]
     Dosage: 20 MG, 1X/DAY
     Dates: start: 20081001
  6. PARACETAMOL [Concomitant]
     Dosage: 500 MG, UNK
     Dates: start: 20050101
  7. PREMARIN [Concomitant]
     Dosage: 1.25 MG, 1X/DAY
  8. PROPRANOLOL HYDROCHLORIDE [Concomitant]
     Dosage: 40 MG, 3X/DAY
     Dates: start: 20050101
  9. TRAMADOL HYDROCHLORIDE [Concomitant]
     Dosage: 50 MG, UNK
     Dates: start: 20020101

REACTIONS (2)
  - OEDEMA [None]
  - VASCULITIC RASH [None]
